FAERS Safety Report 8807986 (Version 1)
Quarter: 2012Q4

REPORT INFORMATION
  Report Type: Report from Study
  Country: GB (occurrence: GB)
  Receive Date: 20120925
  Receipt Date: 20120925
  Transmission Date: 20130627
  Serious: Yes (Death, Hospitalization)
  Sender: FDA-Public Use
  Company Number: GB-JNJFOC-20120908778

PATIENT
  Age: 79 Year
  Sex: Female

DRUGS (18)
  1. REMICADE [Suspect]
     Indication: RHEUMATOID ARTHRITIS
     Route: 042
     Dates: start: 20080918, end: 20120315
  2. METHOTREXATE [Concomitant]
     Route: 058
  3. FOLIC ACID [Concomitant]
  4. BONIVA [Concomitant]
  5. ESOMEPRAZOLE [Concomitant]
  6. OXYBUTYNIN [Concomitant]
  7. ALVERINE CITRATE [Concomitant]
  8. CALCICHEW [Concomitant]
  9. ALFACALCIDOL [Concomitant]
  10. SIMVASTATIN [Concomitant]
  11. RANITIDINE [Concomitant]
  12. FELODIPINE [Concomitant]
  13. AMITRIPTYLINE [Concomitant]
  14. PREGABALIN [Concomitant]
  15. ASPIRIN [Concomitant]
  16. LOPERAMIDE [Concomitant]
  17. CARBIMAZOLE [Concomitant]
  18. PARACETAMOL [Concomitant]

REACTIONS (2)
  - Meningitis [Fatal]
  - Cerebrovascular accident [Fatal]
